FAERS Safety Report 22133867 (Version 2)
Quarter: 2023Q1

REPORT INFORMATION
  Report Type: Report from Study
  Country: BE (occurrence: BE)
  Receive Date: 20230324
  Receipt Date: 20230329
  Transmission Date: 20230418
  Serious: Yes (Hospitalization)
  Sender: FDA-Public Use
  Company Number: BE-002147023-NVSC2023BE064265

PATIENT
  Age: 34 Year
  Sex: Male
  Weight: 98 kg

DRUGS (16)
  1. IRINOTECAN [Suspect]
     Active Substance: IRINOTECAN
     Indication: Colorectal cancer metastatic
     Dosage: 402 MG, Q2W
     Route: 042
     Dates: start: 20221129
  2. NISEVOKITUG [Suspect]
     Active Substance: NISEVOKITUG
     Indication: Colorectal cancer metastatic
     Dosage: 2100 MG, Q2W
     Route: 042
     Dates: start: 20221129
  3. FLUOROURACIL [Suspect]
     Active Substance: FLUOROURACIL
     Indication: Colorectal cancer metastatic
     Dosage: 893.3 MG, Q2W
     Route: 042
     Dates: start: 20221129
  4. FLUOROURACIL [Suspect]
     Active Substance: FLUOROURACIL
     Dosage: 5360 MG, Q2W
     Route: 042
     Dates: start: 20221129
  5. BEVACIZUMAB [Suspect]
     Active Substance: BEVACIZUMAB
     Indication: Colorectal cancer metastatic
     Dosage: 497 MG, Q2W
     Route: 042
     Dates: start: 20221129
  6. SINUTAB [Concomitant]
     Indication: Influenza
     Dosage: UNK
     Route: 065
     Dates: start: 20230115
  7. PANTOPRAZOLE [Concomitant]
     Active Substance: PANTOPRAZOLE
     Indication: Gastrointestinal disorder prophylaxis
     Dosage: UNK
     Route: 065
     Dates: start: 20210707
  8. METRONIDAZOLE [Concomitant]
     Active Substance: METRONIDAZOLE
     Indication: Folliculitis
     Dosage: UNK
     Route: 065
     Dates: start: 20230209
  9. DIFFERIN [Concomitant]
     Active Substance: ADAPALENE
     Indication: Folliculitis
     Dosage: UNK
     Route: 065
     Dates: start: 20230209
  10. SODIUM PHOSPHATE, MONOBASIC, ANHYDROUS [Concomitant]
     Active Substance: SODIUM PHOSPHATE, MONOBASIC, ANHYDROUS
     Indication: Prophylaxis
     Dosage: UNK
     Route: 065
     Dates: start: 20221116
  11. IBUPROFEN [Concomitant]
     Active Substance: IBUPROFEN
     Indication: Back pain
     Dosage: UNK
     Route: 065
     Dates: start: 20221228
  12. TRAMADOL HYDROCHLORIDE [Concomitant]
     Active Substance: TRAMADOL HYDROCHLORIDE
     Indication: Back pain
     Dosage: UNK
     Route: 065
     Dates: start: 20221229
  13. ALIZAPRIDE HYDROCHLORIDE [Concomitant]
     Active Substance: ALIZAPRIDE HYDROCHLORIDE
     Indication: Premedication
     Dosage: UNK
     Route: 065
     Dates: start: 20230112
  14. IMODIUM [Concomitant]
     Active Substance: LOPERAMIDE HYDROCHLORIDE
     Indication: Prophylaxis
     Dosage: UNK
     Route: 065
  15. MOVICOL [Concomitant]
     Active Substance: POLYETHYLENE GLYCOL 3350\POTASSIUM CHLORIDE\SODIUM BICARBONATE\SODIUM CHLORIDE
     Indication: Constipation prophylaxis
     Route: 065
  16. PRIMPERAN [Concomitant]
     Active Substance: METOCLOPRAMIDE HYDROCHLORIDE
     Indication: Prophylaxis of nausea and vomiting
     Route: 065

REACTIONS (1)
  - Folliculitis [Recovering/Resolving]

NARRATIVE: CASE EVENT DATE: 20230318
